FAERS Safety Report 7799037-4 (Version None)
Quarter: 2011Q4

REPORT INFORMATION
  Report Type: 
  Country: None (occurrence: None)
  Receive Date: 20111006
  Receipt Date: 20111003
  Transmission Date: 20120403
  Serious: Yes (Death, Hospitalization, Other)
  Sender: FDA-Public Use
  Company Number: US-AMGEN-USASP2011037133

PATIENT
  Sex: Female
  Weight: 54.422 kg

DRUGS (3)
  1. NPLATE [Suspect]
     Indication: IDIOPATHIC THROMBOCYTOPENIC PURPURA
     Dosage: 4 MUG/KG, QWK
     Dates: start: 20100615, end: 20101111
  2. CORTICOSTEROIDS [Concomitant]
     Dosage: 4 MUG/KG, UNK
  3. TPN                                /06443901/ [Concomitant]
     Indication: ENTEROCUTANEOUS FISTULA

REACTIONS (3)
  - COLORECTAL CANCER METASTATIC [None]
  - DRUG INEFFECTIVE [None]
  - URINARY TRACT INFECTION [None]
